FAERS Safety Report 4817804-3 (Version None)
Quarter: 2005Q3

REPORT INFORMATION
  Report Type: 
  Country: None (occurrence: None)
  Receive Date: 20050929
  Receipt Date: 20050718
  Transmission Date: 20060218
  Serious: No
  Sender: FDA-Public Use
  Company Number: 05P-163-0306011-00

PATIENT
  Age: 57 Year
  Sex: Female
  Weight: 91 kg

DRUGS (7)
  1. HUMIRA [Suspect]
     Indication: RHEUMATOID ARTHRITIS
     Dosage: 40 MG, 1 IN 2 WK, SUBCUTANEOUS
     Route: 058
     Dates: start: 20050101
  2. MELOXICAM [Concomitant]
  3. TOPROL-XL [Concomitant]
  4. ISOSORBIDE DINITRATE [Concomitant]
  5. AMLODIPINE BESYLATE [Concomitant]
  6. ZOLPIDEM TARTRATE [Concomitant]
  7. ULTRASET [Concomitant]

REACTIONS (3)
  - AFFECT LABILITY [None]
  - HOT FLUSH [None]
  - HYPERHIDROSIS [None]
